FAERS Safety Report 21453228 (Version 1)
Quarter: 2022Q4

REPORT INFORMATION
  Report Type: Spontaneous
  Country: US (occurrence: None)
  Receive Date: 20221007
  Receipt Date: 20221007
  Transmission Date: 20230113
  Serious: No
  Sender: FDA-Public Use
  Company Number: None

PATIENT

DRUGS (2)
  1. ATROPINE [Suspect]
     Active Substance: ATROPINE
     Route: 031
  2. ATROPINE [Suspect]
     Active Substance: ATROPINE

REACTIONS (3)
  - Product dispensing error [None]
  - Wrong product administered [None]
  - Product label confusion [None]
